FAERS Safety Report 6550445-9 (Version None)
Quarter: 2010Q1

REPORT INFORMATION
  Report Type: 
  Country: None (occurrence: None)
  Receive Date: 20100125
  Receipt Date: 20100121
  Transmission Date: 20100710
  Serious: No
  Sender: FDA-Public Use
  Company Number: A0840175A

PATIENT
  Age: 33 Year
  Sex: Female

DRUGS (5)
  1. NICODERM CQ [Suspect]
     Indication: SMOKING CESSATION THERAPY
     Dosage: 21MG SINGLE DOSE
     Dates: start: 20100119, end: 20100119
  2. KLONOPIN [Concomitant]
  3. LEXAPRO [Concomitant]
     Indication: DEPRESSION
     Dosage: 20MG AT NIGHT
  4. MULTI-VITAMIN [Concomitant]
  5. TRILEPTAL [Concomitant]
     Indication: EPILEPSY
     Dosage: 450MG TWICE PER DAY
     Route: 048

REACTIONS (1)
  - HEADACHE [None]
